FAERS Safety Report 4994069-3 (Version None)
Quarter: 2006Q2

REPORT INFORMATION
  Report Type: 
  Country: None (occurrence: None)
  Receive Date: 20060505
  Receipt Date: 20060424
  Transmission Date: 20061013
  Serious: Yes (Hospitalization)
  Sender: FDA-Public Use
  Company Number: PHRM2006FR01429

PATIENT
  Age: 25 Year
  Sex: Female
  Weight: 60 kg

DRUGS (8)
  1. HERCEPTIN [Suspect]
     Indication: BREAST CANCER METASTATIC
     Dates: start: 20040515, end: 20041101
  2. HERCEPTIN [Suspect]
     Dates: start: 20041101, end: 20050201
  3. HERCEPTIN [Suspect]
     Dates: start: 20051001
  4. TAXOTERE [Concomitant]
     Indication: BREAST CANCER METASTATIC
     Dates: start: 20040501, end: 20041101
  5. CARBOPLATIN [Concomitant]
     Indication: BREAST CANCER METASTATIC
     Dates: start: 20040501, end: 20041101
  6. NAVELBINE [Concomitant]
     Indication: BREAST CANCER METASTATIC
     Dosage: UNK, UNK
     Dates: start: 20041101, end: 20050201
  7. NAVELBINE [Concomitant]
     Dosage: UNK, UNK
     Dates: start: 20051001
  8. ZOMETA [Suspect]
     Indication: METASTASES TO BONE
     Route: 042
     Dates: start: 20040515, end: 20050515

REACTIONS (4)
  - IMPAIRED HEALING [None]
  - PAIN IN JAW [None]
  - THERAPEUTIC PROCEDURE [None]
  - TOOTH EXTRACTION [None]
